FAERS Safety Report 5701709-X (Version None)
Quarter: 2008Q2

REPORT INFORMATION
  Report Type: 
  Country: None (occurrence: None)
  Receive Date: 20080411
  Receipt Date: 20080328
  Transmission Date: 20081010
  Serious: Yes (Death, Life-Threatening, Hospitalization, Disabling)
  Sender: FDA-Public Use
  Company Number: SE-BAYER-200716915GDS

PATIENT
  Age: 78 Year
  Sex: Female
  Weight: 66 kg

DRUGS (1)
  1. SORAFENIB [Suspect]
     Indication: RENAL CELL CARCINOMA
     Dosage: AS USED: 400 MG  UNIT DOSE: 200 MG
     Route: 048
     Dates: start: 20071031

REACTIONS (5)
  - ARTHRALGIA [None]
  - CARDIAC FAILURE [None]
  - FALL [None]
  - METASTATIC RENAL CELL CARCINOMA [None]
  - PULMONARY HYPERTENSION [None]
